FAERS Safety Report 6166315-4 (Version None)
Quarter: 2009Q2

REPORT INFORMATION
  Report Type: 
  Country: None (occurrence: None)
  Receive Date: 20090422
  Receipt Date: 20090422
  Transmission Date: 20091009
  Serious: No
  Sender: FDA-Public Use
  Company Number: None

PATIENT
  Sex: Male
  Weight: 68.0396 kg

DRUGS (1)
  1. HUMIRA [Suspect]
     Indication: RHEUMATOID ARTHRITIS
     Dosage: 3 PER WK
     Dates: start: 20080914

REACTIONS (3)
  - BONE TUBERCULOSIS [None]
  - ORTHOSIS USER [None]
  - PAIN [None]
